FAERS Safety Report 18536723 (Version 3)
Quarter: 2020Q4

REPORT INFORMATION
  Report Type: Spontaneous
  Country: US (occurrence: US)
  Receive Date: 20201124
  Receipt Date: 20201219
  Transmission Date: 20210114
  Serious: Yes (Other)
  Sender: FDA-Public Use
  Company Number: US-AUROBINDO-AUR-APL-2020-057281

PATIENT
  Age: 79 Year
  Sex: Male
  Weight: 70.31 kg

DRUGS (3)
  1. ALFUZOSIN HYDROCHLORIDE EXTENDED RELEASE [Suspect]
     Active Substance: ALFUZOSIN HYDROCHLORIDE
     Indication: PROSTATOMEGALY
     Dosage: 10 MILLIGRAM, ONCE A DAY (WITH WATER) IN THE EVENING AROUND 9:30 TO 10:30
     Route: 048
     Dates: start: 20201008
  2. PREVAGEN [Concomitant]
     Active Substance: DIETARY SUPPLEMENT
     Indication: PRODUCT USED FOR UNKNOWN INDICATION
     Dosage: UNK
     Route: 065
  3. SYNTHROID [Concomitant]
     Active Substance: LEVOTHYROXINE SODIUM
     Indication: PRODUCT USED FOR UNKNOWN INDICATION
     Dosage: 125 MICROGRAM, EVERY MORNING
     Route: 065

REACTIONS (9)
  - Haemorrhage [Unknown]
  - Prescription drug used without a prescription [Unknown]
  - Dysuria [Unknown]
  - Urinary retention [Unknown]
  - Chromaturia [Unknown]
  - Haemorrhage urinary tract [Not Recovered/Not Resolved]
  - Prostatic haemorrhage [Not Recovered/Not Resolved]
  - Blood phosphorus increased [Unknown]
  - Blood urine present [Unknown]

NARRATIVE: CASE EVENT DATE: 20201111
